FAERS Safety Report 8188802-X (Version None)
Quarter: 2012Q1

REPORT INFORMATION
  Report Type: 
  Country: None (occurrence: None)
  Receive Date: 20120306
  Receipt Date: 20120221
  Transmission Date: 20120608
  Serious: Yes (Other)
  Sender: FDA-Public Use
  Company Number: AU-WATSON-2012-03693

PATIENT
  Age: 64 Year
  Sex: Male

DRUGS (2)
  1. GEMCITABINE [Suspect]
     Indication: SQUAMOUS CELL CARCINOMA
     Dosage: UNK
  2. CARBOPLATIN [Suspect]
     Indication: LUNG SQUAMOUS CELL CARCINOMA STAGE UNSPECIFIED
     Dosage: UNK

REACTIONS (3)
  - PAIN IN EXTREMITY [None]
  - EXTREMITY NECROSIS [None]
  - SKIN ULCER [None]
